FAERS Safety Report 8139065-2 (Version None)
Quarter: 2012Q1

REPORT INFORMATION
  Report Type: 
  Country: None (occurrence: None)
  Receive Date: 20120215
  Receipt Date: 20120213
  Transmission Date: 20120608
  Serious: Yes (Other)
  Sender: FDA-Public Use
  Company Number: US-PFIZER INC-2012039619

PATIENT
  Sex: Female
  Weight: 136 kg

DRUGS (5)
  1. DILANTIN [Suspect]
     Indication: CONVULSION
     Dosage: 100 MG TWO TIMES A DAY, TWO IN MORNING AND ONE AT BEDTIME
     Dates: start: 20070101
  2. PHENOBARBITAL [Concomitant]
     Indication: CONVULSION
     Dosage: 64.8 MG, 2X/DAY
     Dates: start: 20070101
  3. ZEBETA [Concomitant]
     Indication: HYPERTENSION
     Dosage: 10 MG, DAILY
  4. HYDROCHLOROTHIAZIDE [Concomitant]
     Indication: HYPERTENSION
     Dosage: 25 MG, DAILY
  5. PREVACID [Concomitant]
     Indication: GASTROOESOPHAGEAL REFLUX DISEASE
     Dosage: 35 MG, DAILY

REACTIONS (1)
  - ARTHROPATHY [None]
